FAERS Safety Report 8300492-1 (Version None)
Quarter: 2012Q2

REPORT INFORMATION
  Report Type: 
  Country: None (occurrence: None)
  Receive Date: 20120420
  Receipt Date: 20120412
  Transmission Date: 20120825
  Serious: Yes (Other)
  Sender: FDA-Public Use
  Company Number: US-BIOGENIDEC-2012BI003253

PATIENT
  Age: 44 Year
  Sex: Female

DRUGS (7)
  1. RECLAST [Concomitant]
  2. PREVACID [Concomitant]
  3. SYNTHROID [Concomitant]
  4. EFFEXOR [Concomitant]
  5. AVONEX [Suspect]
     Indication: MULTIPLE SCLEROSIS
     Route: 030
     Dates: start: 19960701
  6. IMIPRAMINE HCL [Concomitant]
  7. METHENAMINE TAB [Concomitant]

REACTIONS (2)
  - MALIGNANT MELANOMA IN SITU [None]
  - MELANOCYTIC NAEVUS [None]
